FAERS Safety Report 15555404 (Version 1)
Quarter: 2018Q4

REPORT INFORMATION
  Report Type: Report from Study
  Country: US (occurrence: US)
  Receive Date: 20181026
  Receipt Date: 20181026
  Transmission Date: 20190205
  Serious: Yes (Other)
  Sender: FDA-Public Use
  Company Number: PHEH2018US044844

PATIENT
  Sex: Female

DRUGS (1)
  1. ENTRESTO [Suspect]
     Active Substance: SACUBITRIL\VALSARTAN
     Indication: PRODUCT USED FOR UNKNOWN INDICATION
     Route: 048

REACTIONS (6)
  - Weight increased [Recovering/Resolving]
  - Fibromyalgia [Unknown]
  - Renal impairment [Unknown]
  - Rheumatoid arthritis [Unknown]
  - Cardiac failure [Unknown]
  - Liver disorder [Unknown]
